FAERS Safety Report 25088830 (Version 1)
Quarter: 2025Q1

REPORT INFORMATION
  Report Type: Spontaneous
  Country: GB (occurrence: GB)
  Receive Date: 20250318
  Receipt Date: 20250318
  Transmission Date: 20250409
  Serious: Yes (Hospitalization, Other)
  Sender: TORRENT PHARMA INC.
  Company Number: None

PATIENT
  Age: 43 Year
  Sex: Male

DRUGS (1)
  1. VENLAFAXINE [Suspect]
     Active Substance: VENLAFAXINE HYDROCHLORIDE
     Indication: Depression
     Dosage: 225MG PER DAY
     Route: 065

REACTIONS (9)
  - Product prescribing error [Unknown]
  - Weight decreased [Not Recovered/Not Resolved]
  - Suicide attempt [Not Recovered/Not Resolved]
  - Anxiety [Unknown]
  - Social problem [Unknown]
  - Suicidal ideation [Unknown]
  - Depression [Unknown]
  - Emotional distress [Unknown]
  - Substance abuse [Unknown]

NARRATIVE: CASE EVENT DATE: 20230909
